FAERS Safety Report 4469138-7 (Version None)
Quarter: 2004Q4

REPORT INFORMATION
  Report Type: 
  Country: None (occurrence: None)
  Receive Date: 20041005
  Receipt Date: 20041005
  Transmission Date: 20050328
  Serious: No
  Sender: FDA-Public Use
  Company Number: None

PATIENT
  Age: 53 Year
  Sex: Male
  Weight: 79.3795 kg

DRUGS (6)
  1. VIREAD [Suspect]
     Indication: BLOOD CREATININE INCREASED
     Dosage: 300 MG PO QD
     Route: 048
     Dates: start: 20021222, end: 20040510
  2. 3TC [Concomitant]
  3. ZIAGEN [Concomitant]
  4. SUSTIVA [Concomitant]
  5. SEPTRA DS [Concomitant]
  6. WELLBUTRIN [Concomitant]

REACTIONS (1)
  - FANCONI SYNDROME ACQUIRED [None]
